FAERS Safety Report 19979446 (Version 2)
Quarter: 2021Q4

REPORT INFORMATION
  Report Type: Spontaneous
  Country: JP (occurrence: JP)
  Receive Date: 20211021
  Receipt Date: 20211103
  Transmission Date: 20220304
  Serious: Yes (Other)
  Sender: FDA-Public Use
  Company Number: JP-ACCORD-243176

PATIENT
  Age: 39 Year
  Sex: Female
  Weight: 50.5 kg

DRUGS (2)
  1. LEVETIRACETAM [Suspect]
     Active Substance: LEVETIRACETAM
     Indication: Temporal lobe epilepsy
     Dosage: INCREASED TO 3,000 MG/DAY
     Dates: start: 2018, end: 2019
  2. LACOSAMIDE [Suspect]
     Active Substance: LACOSAMIDE
     Indication: Temporal lobe epilepsy
     Dates: start: 201808

REACTIONS (5)
  - Seizure [Recovered/Resolved]
  - Maternal exposure during pregnancy [Unknown]
  - Drug level increased [Recovered/Resolved]
  - Paradoxical drug reaction [Recovered/Resolved]
  - Epilepsy [Recovered/Resolved]

NARRATIVE: CASE EVENT DATE: 20180101
